FAERS Safety Report 10896804 (Version 1)
Quarter: 2015Q1

REPORT INFORMATION
  Report Type: Spontaneous
  Country: US (occurrence: US)
  Receive Date: 20150309
  Receipt Date: 20150309
  Transmission Date: 20150721
  Serious: Yes (Death)
  Sender: FDA-Public Use
  Company Number: US-BANPHARM-20153683

PATIENT
  Age: 30 Year
  Sex: Male

DRUGS (10)
  1. HEROIN [Suspect]
     Active Substance: DIACETYLMORPHINE
  2. HYDROCODONE [Suspect]
     Active Substance: HYDROCODONE
  3. DOXYLAMINE [Suspect]
     Active Substance: DOXYLAMINE
  4. CITALOPRAM [Suspect]
     Active Substance: CITALOPRAM HYDROBROMIDE
  5. DIPHENHYDRAMINE UNKNOWN PRODUCT [Suspect]
     Active Substance: DIPHENHYDRAMINE
  6. QUININE [Suspect]
     Active Substance: QUININE
  7. ACETAMINOPHEN. [Suspect]
     Active Substance: ACETAMINOPHEN
  8. METHADONE [Suspect]
     Active Substance: METHADONE HYDROCHLORIDE
  9. OXYCODONE [Suspect]
     Active Substance: OXYCODONE
  10. COCAINE [Suspect]
     Active Substance: COCAINE

REACTIONS (1)
  - Drug abuse [Fatal]
